FAERS Safety Report 10319565 (Version 2)
Quarter: 2014Q3

REPORT INFORMATION
  Report Type: Other
  Country: US (occurrence: US)
  Receive Date: 20140719
  Receipt Date: 20140909
  Transmission Date: 20150326
  Serious: Yes (Hospitalization)
  Sender: FDA-Public Use
  Company Number: US-GSKPPD-2014GSK003784

PATIENT
  Age: 82 Year
  Sex: Female

DRUGS (2)
  1. FUROSEMIDE. [Concomitant]
     Active Substance: FUROSEMIDE
     Indication: DIABETES MELLITUS
  2. AVANDIA [Suspect]
     Active Substance: ROSIGLITAZONE MALEATE
     Indication: DIABETES MELLITUS
     Dosage: AVANDIA WAS NOT LISTED AMONG THE PATIENTS DISCHARGE RECORDS.
     Route: 048

REACTIONS (1)
  - Coronary artery disease [Recovered/Resolved]

NARRATIVE: CASE EVENT DATE: 20050626
